FAERS Safety Report 4959789-5 (Version None)
Quarter: 2006Q1

REPORT INFORMATION
  Report Type: 
  Country: None (occurrence: None)
  Receive Date: 20060331
  Receipt Date: 20060331
  Transmission Date: 20060701
  Serious: Yes (Life-Threatening)
  Sender: FDA-Public Use
  Company Number: ES-BOEHRINGER INGELHEIM PHARMACEUTICALS, INC.-2006-ES-00122ES

PATIENT
  Age: 86 Year
  Sex: Male

DRUGS (4)
  1. SPIRIVA [Suspect]
     Route: 055
     Dates: start: 20050201
  2. ZYPREXA [Suspect]
     Route: 048
     Dates: start: 20050201
  3. PHENYTOIN SODIUM CAP [Suspect]
     Route: 048
     Dates: start: 20050201
  4. DISGREN [Suspect]
     Route: 048
     Dates: start: 20050201

REACTIONS (1)
  - CEREBRAL INFARCTION [None]
